FAERS Safety Report 19972741 (Version 1)
Quarter: 2021Q4

REPORT INFORMATION
  Report Type: Spontaneous
  Country: US (occurrence: US)
  Receive Date: 20211019
  Receipt Date: 20211019
  Transmission Date: 20220304
  Serious: Yes (Other)
  Sender: FDA-Public Use
  Company Number: None

PATIENT
  Age: 17 Year
  Sex: Female
  Weight: 51.75 kg

DRUGS (4)
  1. METHYLPHENIDATE [Suspect]
     Active Substance: METHYLPHENIDATE
     Indication: Attention deficit hyperactivity disorder
     Dosage: ?          QUANTITY:30 TABLET(S);
     Route: 048
     Dates: start: 20210701, end: 20211012
  2. GUANFACINE [Concomitant]
     Active Substance: GUANFACINE
  3. LARIN [Concomitant]
  4. VITAMIN D [Concomitant]
     Active Substance: VITAMIN D NOS

REACTIONS (5)
  - Therapy non-responder [None]
  - Manufacturing issue [None]
  - Product substitution issue [None]
  - Educational problem [None]
  - Personal relationship issue [None]

NARRATIVE: CASE EVENT DATE: 20210801
